FAERS Safety Report 18341091 (Version 1)
Quarter: 2020Q4

REPORT INFORMATION
  Report Type: Spontaneous
  Country: US (occurrence: US)
  Receive Date: 20201003
  Receipt Date: 20201003
  Transmission Date: 20210113
  Serious: No
  Sender: FDA-Public Use
  Company Number: US-UNITED THERAPEUTICS-UNT-2020-014156

PATIENT
  Sex: Female
  Weight: 54.88 kg

DRUGS (4)
  1. REMODULIN [Suspect]
     Active Substance: TREPROSTINIL
     Indication: PULMONARY ARTERIAL HYPERTENSION
     Dosage: UNK UNK, CONTINUING
     Route: 041
     Dates: start: 20200316
  2. REMODULIN [Suspect]
     Active Substance: TREPROSTINIL
     Dosage: UNK UNK, CONTINUING
     Route: 041
     Dates: start: 2020
  3. REMODULIN [Suspect]
     Active Substance: TREPROSTINIL
     Dosage: 0.05 ?G/KG, CONTINUING
     Route: 041
     Dates: start: 2020
  4. AMBRISENTAN [Concomitant]
     Active Substance: AMBRISENTAN
     Indication: PRODUCT USED FOR UNKNOWN INDICATION
     Route: 065

REACTIONS (2)
  - Hyperhidrosis [Unknown]
  - Dermatitis contact [Unknown]

NARRATIVE: CASE EVENT DATE: 2020
